FAERS Safety Report 11860025 (Version 1)
Quarter: 2015Q4

REPORT INFORMATION
  Report Type: Spontaneous
  Country: US (occurrence: US)
  Receive Date: 20151222
  Receipt Date: 20151222
  Transmission Date: 20160305
  Serious: Yes (Other)
  Sender: FDA-Public Use
  Company Number: US-TEVA-620356USA

PATIENT
  Age: 43 Year
  Sex: Female

DRUGS (1)
  1. ZECUITY [Suspect]
     Active Substance: SUMATRIPTAN SUCCINATE
     Route: 062
     Dates: start: 20151212

REACTIONS (5)
  - Application site erythema [Unknown]
  - Application site irritation [Unknown]
  - Pain in extremity [Unknown]
  - Application site pain [Unknown]
  - Application site burn [Unknown]

NARRATIVE: CASE EVENT DATE: 20151213
